FAERS Safety Report 18699192 (Version 1)
Quarter: 2021Q1

REPORT INFORMATION
  Report Type: Spontaneous
  Country: US (occurrence: US)
  Receive Date: 20210104
  Receipt Date: 20210104
  Transmission Date: 20210419
  Serious: No
  Sender: FDA-Public Use
  Company Number: US-PFIZER INC-2020234980

PATIENT
  Age: 65 Year
  Sex: Female

DRUGS (4)
  1. MEKTOVI [Suspect]
     Active Substance: BINIMETINIB
     Indication: MALIGNANT MELANOMA
     Dosage: 45 MG, 2X/DAY
     Route: 048
  2. BRAFTOVI [Suspect]
     Active Substance: ENCORAFENIB
     Indication: MALIGNANT MELANOMA
     Dosage: 450 MG, 1X/DAY
     Route: 048
  3. BRAFTOVI [Suspect]
     Active Substance: ENCORAFENIB
     Dosage: 375 MG, DAILY
     Dates: start: 20200416
  4. MEKTOVI [Suspect]
     Active Substance: BINIMETINIB
     Dosage: 75 MG, DAILY
     Dates: start: 20200416

REACTIONS (1)
  - Hair disorder [Unknown]

NARRATIVE: CASE EVENT DATE: 2020
